FAERS Safety Report 8794821 (Version 1)
Quarter: 2012Q4

REPORT INFORMATION
  Report Type: 
  Country: ES (occurrence: ES)
  Receive Date: 20120917
  Receipt Date: 20120917
  Transmission Date: 20130627
  Serious: Yes (Other)
  Sender: FDA-Public Use
  Company Number: ES-ABBOTT-12P-144-0977754-00

PATIENT
  Age: 60 Year
  Sex: Male

DRUGS (1)
  1. SECALIP [Suspect]
     Indication: HYPERLIPIDAEMIA
     Route: 048
     Dates: start: 20070112, end: 20070413

REACTIONS (1)
  - Photosensitivity reaction [Unknown]
